FAERS Safety Report 17001797 (Version 2)
Quarter: 2019Q4

REPORT INFORMATION
  Report Type: Spontaneous
  Country: US (occurrence: US)
  Receive Date: 20191106
  Receipt Date: 20191126
  Transmission Date: 20200122
  Serious: No
  Sender: FDA-Public Use
  Company Number: US-ELI_LILLY_AND_COMPANY-US201911001891

PATIENT
  Age: 51 Year
  Sex: Male

DRUGS (4)
  1. GABAPENTIN. [Suspect]
     Active Substance: GABAPENTIN
     Indication: MUSCULOSKELETAL DISCOMFORT
     Dosage: UNK, UNKNOWN
     Route: 065
  2. GABAPENTIN. [Concomitant]
     Active Substance: GABAPENTIN
     Indication: MUSCULOSKELETAL DISCOMFORT
     Dosage: UNK, UNKNOWN
     Route: 065
  3. CIALIS [Suspect]
     Active Substance: TADALAFIL
     Dosage: UNK UNK, DAILY
     Route: 065
     Dates: start: 20191030
  4. CIALIS [Suspect]
     Active Substance: TADALAFIL
     Indication: PROSTATIC DISORDER
     Dosage: UNK, DAILY
     Route: 065
     Dates: end: 201908

REACTIONS (3)
  - Nocturia [Not Recovered/Not Resolved]
  - Therapeutic response decreased [Not Recovered/Not Resolved]
  - Sleep disorder due to general medical condition, insomnia type [Not Recovered/Not Resolved]
